FAERS Safety Report 21021051 (Version 1)
Quarter: 2022Q2

REPORT INFORMATION
  Report Type: Spontaneous
  Country: RO (occurrence: RO)
  Receive Date: 20220629
  Receipt Date: 20220629
  Transmission Date: 20220721
  Serious: Yes (Other)
  Sender: FDA-Public Use
  Company Number: RO-009507513-2206ROU006568

PATIENT
  Age: 65 Year
  Sex: Male

DRUGS (9)
  1. PEMBROLIZUMAB [Suspect]
     Active Substance: PEMBROLIZUMAB
     Indication: Squamous cell carcinoma
     Dosage: UNK
     Dates: start: 202110
  2. CARBOPLATIN [Suspect]
     Active Substance: CARBOPLATIN
     Indication: Squamous cell carcinoma
     Dosage: AUC = 5 ^Z1^
     Dates: start: 202110
  3. FLUOROURACIL SODIUM [Suspect]
     Active Substance: FLUOROURACIL SODIUM
     Indication: Squamous cell carcinoma
     Dosage: 1000 MG/M2 ^Z1-4^
     Dates: start: 202110
  4. CLOPIDOGREL [Concomitant]
     Active Substance: CLOPIDOGREL BISULFATE
  5. ROSUVASTATIN [Concomitant]
     Active Substance: ROSUVASTATIN
  6. PROPRANOLOL HYDROCHLORIDE [Concomitant]
     Active Substance: PROPRANOLOL HYDROCHLORIDE
  7. PENTOXY [Concomitant]
  8. BETAHISTINE [Concomitant]
     Active Substance: BETAHISTINE
  9. PRAMIRACETAM SULFATE [Concomitant]
     Active Substance: PRAMIRACETAM SULFATE

REACTIONS (5)
  - Laryngeal oedema [Unknown]
  - Oral discomfort [Unknown]
  - Skin burning sensation [Unknown]
  - Therapy partial responder [Unknown]
  - Off label use [Unknown]

NARRATIVE: CASE EVENT DATE: 20210101
